FAERS Safety Report 7753555-3 (Version None)
Quarter: 2011Q3

REPORT INFORMATION
  Report Type: 
  Country: None (occurrence: None)
  Receive Date: 20110915
  Receipt Date: 20110913
  Transmission Date: 20111222
  Serious: Yes (Hospitalization)
  Sender: FDA-Public Use
  Company Number: US-GLAXOSMITHKLINE-A0758807A

PATIENT
  Age: 40 Year
  Sex: Male
  Weight: 90.9 kg

DRUGS (3)
  1. GLIPIZIDE [Concomitant]
  2. GLUCOTROL [Concomitant]
     Dates: start: 20010101
  3. AVANDIA [Suspect]
     Indication: TYPE 2 DIABETES MELLITUS
     Dosage: 4MG PER DAY
     Route: 048
     Dates: start: 19990101, end: 20070522

REACTIONS (9)
  - PAIN [None]
  - CORONARY ARTERY STENOSIS [None]
  - HYPERLIPIDAEMIA [None]
  - DIABETES MELLITUS [None]
  - ATRIAL FIBRILLATION [None]
  - CONDITION AGGRAVATED [None]
  - ACUTE MYOCARDIAL INFARCTION [None]
  - HYPERTENSION [None]
  - CORONARY ARTERY DISEASE [None]
